FAERS Safety Report 4900817-0 (Version None)
Quarter: 2006Q1

REPORT INFORMATION
  Report Type: 
  Country: None (occurrence: None)
  Receive Date: 20060201
  Receipt Date: 20060110
  Transmission Date: 20060701
  Serious: Yes (Hospitalization)
  Sender: FDA-Public Use
  Company Number: SE200511002599

PATIENT
  Age: 61 Year
  Sex: Female
  Weight: 74 kg

DRUGS (2)
  1. GEMCITABINE HYDROCHLORIDE(GEMCITABINE HYDROCHLORIDE) VIAL [Suspect]
     Indication: BREAST CANCER METASTATIC
     Dosage: MG/M2, UNK, INTRAVENOUS
     Route: 042
     Dates: start: 20051107
  2. PACLITAXEL [Suspect]
     Indication: BREAST CANCER METASTATIC
     Dosage: 105 MG/M2, INTRAVENOUS
     Route: 042
     Dates: start: 20051107

REACTIONS (8)
  - BLOOD ALKALINE PHOSPHATASE INCREASED [None]
  - EPISTAXIS [None]
  - FATIGUE [None]
  - HAEMOGLOBIN DECREASED [None]
  - NEUTROPHIL COUNT DECREASED [None]
  - PYREXIA [None]
  - THROMBOCYTOPENIA [None]
  - WHITE BLOOD CELL COUNT DECREASED [None]
